FAERS Safety Report 17873052 (Version 2)
Quarter: 2020Q2

REPORT INFORMATION
  Report Type: Spontaneous
  Country: KR (occurrence: KR)
  Receive Date: 20200608
  Receipt Date: 20200610
  Transmission Date: 20200714
  Serious: Yes (Hospitalization, Other)
  Sender: FDA-Public Use
  Company Number: KR-TAKEDA-2017TEU004888

PATIENT
  Age: 57 Year
  Sex: Female
  Weight: 55.5 kg

DRUGS (61)
  1. STERILE WATER [Concomitant]
     Active Substance: WATER
     Indication: PAPILLARY THYROID CANCER
     Dosage: UNK UNK, QD
     Route: 042
     Dates: start: 20160317, end: 20160317
  2. PYRINOL                            /00221802/ [Concomitant]
     Indication: PAPILLARY THYROID CANCER
     Dosage: UNK UNK, QD
     Route: 042
     Dates: start: 20160317, end: 20160317
  3. FENTANYL CITRATE. [Concomitant]
     Active Substance: FENTANYL CITRATE
     Indication: SURGERY
  4. ACLOFEN [Concomitant]
     Indication: ARTHRALGIA
     Dosage: UNK UNK, BID
     Route: 048
     Dates: start: 20160511, end: 20160522
  5. CELEBREX [Concomitant]
     Active Substance: CELECOXIB
     Indication: ARTHRALGIA
     Dosage: UNK
     Route: 048
     Dates: start: 20160523, end: 20160627
  6. ATORVASTATIN [Concomitant]
     Active Substance: ATORVASTATIN
     Indication: PROPHYLAXIS
     Dosage: UNK UNK, QD
     Route: 048
     Dates: start: 2015
  7. PREGABALIN. [Concomitant]
     Active Substance: PREGABALIN
     Indication: PROPHYLAXIS
     Dosage: UNK UNK, BID
     Route: 048
     Dates: start: 20160218
  8. PETHIDINE HCL [Concomitant]
     Indication: SURGERY
  9. MECKOOL [Concomitant]
     Indication: PROPHYLAXIS
  10. MAGMIL [Concomitant]
     Active Substance: MAGNESIUM HYDROXIDE
     Indication: PAPILLARY THYROID CANCER
     Dosage: UNK UNK, QD
     Route: 048
     Dates: start: 20160317, end: 20160320
  11. STILLEN [Concomitant]
     Indication: PROPHYLAXIS
     Dosage: UNK UNK, TID
     Route: 048
     Dates: start: 20160318, end: 20160324
  12. LIDOCAINE HCL [Concomitant]
     Active Substance: LIDOCAINE HYDROCHLORIDE
     Indication: PAPILLARY THYROID CANCER
     Dosage: UNK UNK, QD
     Route: 042
     Dates: start: 20160317, end: 20160317
  13. LIDOCAINE HCL [Concomitant]
     Active Substance: LIDOCAINE HYDROCHLORIDE
     Indication: SURGERY
  14. SYNTHROID [Concomitant]
     Active Substance: LEVOTHYROXINE SODIUM
     Indication: SURGERY
  15. ACECLOFENAC [Concomitant]
     Active Substance: ACECLOFENAC
     Indication: PROPHYLAXIS
  16. PETHIDINE HCL [Concomitant]
     Indication: PAPILLARY THYROID CANCER
     Dosage: UNK UNK, QD
     Route: 042
     Dates: start: 20160317, end: 20160317
  17. TYLENOL ER [Concomitant]
     Active Substance: ACETAMINOPHEN
     Indication: PROPHYLAXIS
  18. MUCOSTA [Concomitant]
     Active Substance: REBAMIPIDE
     Indication: PROPHYLAXIS
  19. HARTMANN^S SOLUTION [Concomitant]
     Active Substance: CALCIUM CHLORIDE\POTASSIUM CHLORIDE\SODIUM CHLORIDE\SODIUM LACTATE
     Indication: PAPILLARY THYROID CANCER
     Dosage: 1 LITER, QD
     Route: 042
     Dates: start: 20160317, end: 20160317
  20. SODIUM CHLORIDE AND GLUCOSE [Concomitant]
     Indication: PAPILLARY THYROID CANCER
     Dosage: UNK UNK, QD
     Route: 042
     Dates: start: 20160317, end: 20160318
  21. SODIUM CHLORIDE AND GLUCOSE [Concomitant]
     Indication: SURGERY
  22. HARTMANN                           /00490001/ [Concomitant]
     Indication: SURGERY
  23. BOTROPASE [Concomitant]
     Active Substance: BATROXOBIN
     Indication: SURGERY
  24. AMBROXOL [Concomitant]
     Active Substance: AMBROXOL
     Indication: PAPILLARY THYROID CANCER
     Dosage: UNK UNK, BID
     Route: 042
     Dates: start: 20160317, end: 20160318
  25. VARIDASE [Concomitant]
     Indication: PROPHYLAXIS
  26. ESMERON [Concomitant]
     Active Substance: ROCURONIUM BROMIDE
     Indication: SURGERY
  27. MOBINUL [Concomitant]
     Indication: PAPILLARY THYROID CANCER
     Dosage: UNK UNK, QD
     Route: 042
     Dates: start: 20160317, end: 20160317
  28. FENTANYL CITRATE. [Concomitant]
     Active Substance: FENTANYL CITRATE
     Indication: PAPILLARY THYROID CANCER
     Dosage: UNK UNK, QD
     Route: 042
     Dates: start: 20160317, end: 20160317
  29. TYLENOL ER [Concomitant]
     Active Substance: ACETAMINOPHEN
     Indication: PAPILLARY THYROID CANCER
     Dosage: UNK UNK, QD
     Route: 048
     Dates: start: 20160320, end: 20160320
  30. PARAMACET SEMI [Concomitant]
     Indication: ARTHRALGIA
     Dosage: UNK
     Route: 048
     Dates: start: 20160511, end: 20160627
  31. MECKOOL [Concomitant]
     Indication: PAPILLARY THYROID CANCER
     Dosage: UNK
     Route: 042
     Dates: start: 20160317, end: 20160317
  32. HARTMANN^S SOLUTION [Concomitant]
     Active Substance: CALCIUM CHLORIDE\POTASSIUM CHLORIDE\SODIUM CHLORIDE\SODIUM LACTATE
     Indication: SURGERY
  33. YAMATETAN [Concomitant]
     Indication: SURGERY
  34. CALCIUM GLUCONATE. [Concomitant]
     Active Substance: CALCIUM GLUCONATE
     Indication: PROPHYLAXIS
  35. GLUCOSE INJECTION [Concomitant]
     Active Substance: DEXTROSE
     Indication: SURGERY
  36. STILLEN [Concomitant]
     Indication: PAPILLARY THYROID CANCER
     Dosage: UNK UNK, QD
     Route: 048
     Dates: start: 20160317, end: 20160317
  37. FRESOFOL MCT [Concomitant]
     Indication: PAPILLARY THYROID CANCER
     Dosage: UNK UNK, QD
     Route: 042
     Dates: start: 20160317, end: 20160317
  38. FRESOFOL MCT [Concomitant]
     Indication: SURGERY
  39. ESMERON [Concomitant]
     Active Substance: ROCURONIUM BROMIDE
     Indication: PAPILLARY THYROID CANCER
     Dosage: UNK UNK, QD
     Route: 042
     Dates: start: 20160317, end: 20160317
  40. PYRINOL                            /00221802/ [Concomitant]
     Indication: SURGERY
  41. MUCOSTA [Concomitant]
     Active Substance: REBAMIPIDE
     Indication: PROPHYLAXIS AGAINST GASTROINTESTINAL ULCER
     Dosage: UNK UNK, BID
     Route: 048
     Dates: start: 20160511, end: 20160627
  42. CIMET                              /00397401/ [Concomitant]
     Indication: PAPILLARY THYROID CANCER
     Dosage: UNK, BID
     Route: 048
     Dates: start: 20160627, end: 20160630
  43. NESINA [Suspect]
     Active Substance: ALOGLIPTIN BENZOATE
     Indication: TYPE 2 DIABETES MELLITUS
     Dosage: 12.5 MILLIGRAM, QD
     Route: 048
     Dates: start: 20160218
  44. METFORMIN [Concomitant]
     Active Substance: METFORMIN HYDROCHLORIDE
     Indication: TYPE 2 DIABETES MELLITUS
     Dosage: UNK UNK, QD
     Route: 048
     Dates: start: 2015
  45. YAMATETAN [Concomitant]
     Indication: PAPILLARY THYROID CANCER
     Dosage: 1 GRAM, QD
     Route: 042
     Dates: start: 20160317, end: 20160317
  46. GLUCOSE INJECTION [Concomitant]
     Active Substance: DEXTROSE
     Indication: PAPILLARY THYROID CANCER
     Dosage: UNK
     Route: 042
     Dates: start: 20160317, end: 20160321
  47. HARTMANN                           /00490001/ [Concomitant]
     Indication: PAPILLARY THYROID CANCER
     Dosage: UNK UNK, QD
     Route: 042
     Dates: start: 20160317, end: 20160317
  48. ADCAL                              /00056901/ [Concomitant]
     Active Substance: CARBAZOCHROME
     Indication: PAPILLARY THYROID CANCER
     Dosage: UNK UNK, QD
     Route: 048
     Dates: start: 20160317
  49. ONEALFA [Concomitant]
     Active Substance: ALFACALCIDOL
     Indication: PAPILLARY THYROID CANCER
     Dosage: UNK UNK, QD
     Route: 048
     Dates: start: 20160317, end: 20160420
  50. MOBINUL [Concomitant]
     Indication: SURGERY
  51. RANITIDINE. [Concomitant]
     Active Substance: RANITIDINE
     Indication: PROPHYLAXIS
  52. CALCIUM GLUCONATE. [Concomitant]
     Active Substance: CALCIUM GLUCONATE
     Indication: PAPILLARY THYROID CANCER
     Dosage: UNK UNK, QD
     Route: 042
     Dates: start: 20160317, end: 20160321
  53. VARIDASE [Concomitant]
     Indication: PAPILLARY THYROID CANCER
     Dosage: UNK UNK, QD
     Route: 048
     Dates: start: 20160317, end: 20160324
  54. STERILE WATER [Concomitant]
     Active Substance: WATER
     Indication: SURGERY
  55. ATENOLOL. [Concomitant]
     Active Substance: ATENOLOL
     Indication: HYPERTENSION
     Dosage: UNK UNK, BID
     Route: 048
     Dates: start: 20160218
  56. ACECLOFENAC [Concomitant]
     Active Substance: ACECLOFENAC
     Indication: PAIN PROPHYLAXIS
     Dosage: UNK UNK, BID
     Route: 048
     Dates: start: 20160218, end: 20160417
  57. RANITIDINE. [Concomitant]
     Active Substance: RANITIDINE
     Indication: PROPHYLAXIS AGAINST GASTROINTESTINAL ULCER
     Dosage: UNK UNK, BID
     Route: 048
     Dates: start: 20160218
  58. BOTROPASE [Concomitant]
     Active Substance: BATROXOBIN
     Indication: PAPILLARY THYROID CANCER
     Dosage: UNK UNK, BID
     Route: 042
     Dates: start: 20160317, end: 20160318
  59. SYNTHROID [Concomitant]
     Active Substance: LEVOTHYROXINE SODIUM
     Indication: PAPILLARY THYROID CANCER
     Dosage: UNK UNK, QD
     Route: 048
     Dates: start: 20160318
  60. TRIAMCINOLONE [Concomitant]
     Active Substance: TRIAMCINOLONE
     Indication: ARTHRALGIA
     Dosage: UNK
     Route: 042
     Dates: start: 20160523, end: 20160523
  61. MACPERAN [Concomitant]
     Active Substance: METOCLOPRAMIDE HYDROCHLORIDE
     Indication: PAPILLARY THYROID CANCER
     Dosage: UNK
     Route: 048
     Dates: start: 20160627, end: 20160630

REACTIONS (3)
  - Thyroidectomy [Recovering/Resolving]
  - Arthralgia [Recovered/Resolved]
  - Papillary thyroid cancer [Recovering/Resolving]

NARRATIVE: CASE EVENT DATE: 20160316
